FAERS Safety Report 8313918-4 (Version None)
Quarter: 2012Q2

REPORT INFORMATION
  Report Type: 
  Country: None (occurrence: None)
  Receive Date: 20120426
  Receipt Date: 20120426
  Transmission Date: 20120825
  Serious: Yes (Other)
  Sender: FDA-Public Use
  Company Number: None

PATIENT
  Age: 55 Year
  Sex: Male
  Weight: 83.914 kg

DRUGS (2)
  1. FINASTERIDE [Suspect]
     Indication: BENIGN PROSTATIC HYPERPLASIA
     Dosage: 5MG
     Route: 048
     Dates: start: 19950101, end: 20120425
  2. AVODART [Concomitant]

REACTIONS (3)
  - QUALITY OF LIFE DECREASED [None]
  - BLOOD TESTOSTERONE DECREASED [None]
  - ADVERSE DRUG REACTION [None]
